FAERS Safety Report 9242934 (Version 1)
Quarter: 2013Q2

REPORT INFORMATION
  Report Type: Spontaneous
  Country: GB (occurrence: GB)
  Receive Date: 20130419
  Receipt Date: 20130419
  Transmission Date: 20140414
  Serious: Yes (Other)
  Sender: FDA-Public Use
  Company Number: GB-MERCK-1302GBR007824

PATIENT
  Age: 25 Year
  Sex: Female
  Weight: 58 kg

DRUGS (6)
  1. VICTRELIS [Suspect]
     Indication: HEPATITIS C
     Dosage: 800 MG, Q8H
     Route: 048
     Dates: start: 20130130
  2. INTERFERON (UNSPECIFIED) [Suspect]
  3. REBETOL [Suspect]
     Dosage: UNK
     Dates: start: 20121126
  4. FOLIC ACID [Concomitant]
  5. DERMOL (BENZALKONIUM CHLORIDE (+) ISOPROPYL MYRISTATE (+) MINERAL OIL) [Concomitant]
  6. ZOPICLONE [Concomitant]
     Dosage: UNK
     Dates: start: 20121126

REACTIONS (3)
  - Atrioventricular block second degree [Not Recovered/Not Resolved]
  - Fatigue [Unknown]
  - Atrioventricular block first degree [Not Recovered/Not Resolved]
